FAERS Safety Report 23552359 (Version 2)
Quarter: 2024Q1

REPORT INFORMATION
  Report Type: Spontaneous
  Country: FR (occurrence: FR)
  Receive Date: 20240222
  Receipt Date: 20240326
  Transmission Date: 20240410
  Serious: Yes (Hospitalization, Other)
  Sender: FDA-Public Use
  Company Number: None

PATIENT
  Age: 64 Year
  Sex: Female
  Weight: 57 kg

DRUGS (19)
  1. VENETOCLAX [Suspect]
     Active Substance: VENETOCLAX
     Indication: Plasma cell myeloma
     Dosage: 100 MG, FILM COATED TABLET?SEVENTH LINE
     Route: 048
     Dates: start: 202209, end: 202212
  2. VENETOCLAX [Suspect]
     Active Substance: VENETOCLAX
     Indication: Plasma cell myeloma
     Dosage: A DAILY DOSE.
     Route: 048
     Dates: start: 20240119
  3. LEVOTHYROXINE [Concomitant]
     Active Substance: LEVOTHYROXINE\LEVOTHYROXINE SODIUM
     Indication: Autoimmune thyroiditis
     Dosage: LEVOTHYROX 50 MICROGRAMS, SCORED TABLET [LEVOTHYROXINE SODIUM]
     Route: 065
  4. TECVAYLI [Suspect]
     Active Substance: TECLISTAMAB-CQYV
     Indication: Plasma cell myeloma
     Dosage: TIME INTERVAL: 1 CYCLICAL: 1.5 MG/KG?LAST ADMIN DATE JAN 2023
     Route: 042
     Dates: start: 20230124
  5. TECVAYLI [Suspect]
     Active Substance: TECLISTAMAB-CQYV
     Indication: Plasma cell myeloma
     Dosage: ONE DOSE EVERY 2 WEEKS?THE LAST DOSE ADMINISTERED ON 02-JAN-2024 (C14).
     Route: 042
     Dates: end: 20240102
  6. TECVAYLI [Suspect]
     Active Substance: TECLISTAMAB-CQYV
     Indication: Plasma cell myeloma
     Dosage: 8TH LINE OF TREATMENT?LAST ADMIN DATE JAN 2024
     Route: 042
     Dates: start: 20240119
  7. TECVAYLI [Suspect]
     Active Substance: TECLISTAMAB-CQYV
     Indication: Plasma cell myeloma
     Dosage: 0.30 MG/KG OR 18 MG?LAST ADMIN DATE JAN 2023
     Route: 042
     Dates: start: 20230126
  8. TECVAYLI [Suspect]
     Active Substance: TECLISTAMAB-CQYV
     Indication: Plasma cell myeloma
     Dosage: LAST ADMIN DATE 2024
     Route: 042
     Dates: start: 2024
  9. TECVAYLI [Suspect]
     Active Substance: TECLISTAMAB-CQYV
     Indication: Plasma cell myeloma
     Dosage: 0.06 MG/KG OR 3.5 MG?EIGHTH LINE: C1?FIRST ADMIN DATE JAN 2023?LAST ADMIN DATE JAN 2024
     Route: 042
  10. ZOMETA [Concomitant]
     Active Substance: ZOLEDRONIC ACID
     Indication: Product used for unknown indication
     Dosage: 4 MG EVERY 3 MONTHS
     Route: 065
  11. IMOVANE [Concomitant]
     Active Substance: ZOPICLONE
     Indication: Product used for unknown indication
     Dosage: IMOVANE 7.5 MG, SCORED FILM-COATED TABLET [ZOPICLONE]
     Route: 065
  12. CYCLOPHOSPHAMIDE [Suspect]
     Active Substance: CYCLOPHOSPHAMIDE
     Indication: Plasma cell myeloma
     Route: 065
     Dates: end: 202212
  13. BACTRIM [Concomitant]
     Active Substance: SULFAMETHOXAZOLE\TRIMETHOPRIM
     Indication: Prophylaxis
     Dosage: BACTRIM 800: 1 TAB ON MONDAYS, WEDNESDAYS, FRIDAYS
     Route: 065
  14. BACTRIM [Concomitant]
     Active Substance: SULFAMETHOXAZOLE\TRIMETHOPRIM
     Indication: Prophylaxis
  15. DOXORUBICIN HYDROCHLORIDE [Suspect]
     Active Substance: DOXORUBICIN HYDROCHLORIDE
     Indication: Plasma cell myeloma
     Route: 065
     Dates: end: 202212
  16. FOLIC ACID [Concomitant]
     Active Substance: FOLIC ACID
     Indication: Product used for unknown indication
     Dosage: 1 TAB ON TUESDAYS, THURSDAYS AND SATURDAYS
     Route: 065
  17. VALACYCLOVIR HYDROCHLORIDE [Concomitant]
     Active Substance: VALACYCLOVIR HYDROCHLORIDE
     Indication: Product used for unknown indication
     Dosage: 1 TAB IN THE MORNING
     Route: 065
  18. FOLIC ACID [Concomitant]
     Active Substance: FOLIC ACID
     Indication: Product used for unknown indication
  19. AMLODIPINE [Concomitant]
     Active Substance: AMLODIPINE BESYLATE
     Indication: Product used for unknown indication
     Dosage: 5 MG: 1 TAB
     Route: 065

REACTIONS (6)
  - Basal cell carcinoma [Recovering/Resolving]
  - Off label use [Unknown]
  - Off label use [Unknown]
  - Product use issue [Unknown]
  - Pyrexia [Unknown]
  - Infection [Unknown]

NARRATIVE: CASE EVENT DATE: 20231220
